FAERS Safety Report 5298831-1 (Version None)
Quarter: 2007Q2

REPORT INFORMATION
  Report Type: 
  Country: None (occurrence: None)
  Receive Date: 20070417
  Receipt Date: 20070409
  Transmission Date: 20071010
  Serious: Yes (Other)
  Sender: FDA-Public Use
  Company Number: JP-BAYER-200710144BYL

PATIENT
  Age: 72 Year
  Sex: Male
  Weight: 55 kg

DRUGS (5)
  1. AVELOX [Suspect]
     Indication: PSOAS ABSCESS
     Dosage: TOTAL DAILY DOSE: 400 MG  UNIT DOSE: 400 MG
     Route: 048
     Dates: start: 20070117, end: 20070220
  2. URSO [Concomitant]
     Route: 048
     Dates: start: 20070108, end: 20070220
  3. SELBEX [Concomitant]
     Route: 048
     Dates: end: 20070220
  4. MARZULENE [Concomitant]
     Route: 048
     Dates: end: 20070220
  5. LENDORMIN [Concomitant]
     Route: 048
     Dates: end: 20070220

REACTIONS (9)
  - BLISTER [None]
  - CHEILITIS [None]
  - CORNEAL OEDEMA [None]
  - ENANTHEMA [None]
  - ERYTHEMA MULTIFORME [None]
  - PRURITUS [None]
  - RASH [None]
  - SKIN EXFOLIATION [None]
  - TOXIC EPIDERMAL NECROLYSIS [None]
